FAERS Safety Report 7741927-2 (Version None)
Quarter: 2011Q3

REPORT INFORMATION
  Report Type: 
  Country: None (occurrence: None)
  Receive Date: 20110912
  Receipt Date: 20110831
  Transmission Date: 20111222
  Serious: No
  Sender: FDA-Public Use
  Company Number: JP-JNJFOC-20110902688

PATIENT

DRUGS (4)
  1. FENTANYL CITRATE [Suspect]
     Indication: LUNG NEOPLASM MALIGNANT
     Route: 062
  2. FENTANYL CITRATE [Suspect]
     Route: 062
  3. FENTANYL CITRATE [Suspect]
     Indication: MUSCULOSKELETAL PAIN
     Route: 062
  4. FENTANYL CITRATE [Suspect]
     Route: 062

REACTIONS (2)
  - NAUSEA [None]
  - DRUG PRESCRIBING ERROR [None]
